FAERS Safety Report 9110063 (Version 2)
Quarter: 2013Q2

REPORT INFORMATION
  Report Type: Report from Study
  Country: CA (occurrence: CA)
  Receive Date: 20130222
  Receipt Date: 20130612
  Transmission Date: 20140414
  Serious: Yes (Other)
  Sender: FDA-Public Use
  Company Number: CA-JNJFOC-20130207905

PATIENT
  Age: 37 Year
  Sex: Female
  Weight: 78 kg

DRUGS (4)
  1. REMICADE [Suspect]
     Indication: COLITIS ULCERATIVE
     Route: 042
     Dates: start: 20130604
  2. REMICADE [Suspect]
     Indication: COLITIS ULCERATIVE
     Route: 042
     Dates: start: 20091112
  3. ELAVIL [Concomitant]
     Route: 065
  4. CITALOPRAM [Concomitant]
     Route: 065

REACTIONS (5)
  - Nephrolithiasis [Recovered/Resolved]
  - Ovarian cyst [Unknown]
  - Infusion related reaction [Recovered/Resolved]
  - Pruritus [Recovered/Resolved]
  - Nausea [Recovered/Resolved]
